FAERS Safety Report 15289109 (Version 1)
Quarter: 2018Q3

REPORT INFORMATION
  Report Type: Spontaneous
  Country: US (occurrence: US)
  Receive Date: 20180803
  Receipt Date: 20180803
  Transmission Date: 20181010
  Serious: Yes (Life-Threatening)
  Sender: FDA-Public Use
  Company Number: None

PATIENT
  Age: 88 Year
  Sex: Male
  Weight: 69.75 kg

DRUGS (9)
  1. PROTONIX [Concomitant]
     Active Substance: PANTOPRAZOLE SODIUM
  2. PROBIOTIC [Concomitant]
     Active Substance: PROBIOTICS NOS
  3. PANCRELIPASE. [Concomitant]
     Active Substance: PANCRELIPASE
  4. ONDANSETRON [Concomitant]
     Active Substance: ONDANSETRON
  5. FAMOTIDINE. [Concomitant]
     Active Substance: FAMOTIDINE
  6. TAMSULOSIN [Concomitant]
     Active Substance: TAMSULOSIN
  7. NORCO [Concomitant]
     Active Substance: ACETAMINOPHEN\HYDROCODONE BITARTRATE
  8. FINASTERIDE. [Concomitant]
     Active Substance: FINASTERIDE
  9. DIOVAN [Suspect]
     Active Substance: VALSARTAN
     Indication: HYPERTENSION
     Route: 048
     Dates: start: 20170630, end: 20180718

REACTIONS (8)
  - Malaise [None]
  - Blood glucose decreased [None]
  - Diarrhoea [None]
  - Jaundice [None]
  - Protein total decreased [None]
  - Weight decreased [None]
  - Pancreatic carcinoma [None]
  - Pain [None]

NARRATIVE: CASE EVENT DATE: 20180605
